FAERS Safety Report 4621823-X (Version None)
Quarter: 2005Q1

REPORT INFORMATION
  Report Type: 
  Country: None (occurrence: None)
  Receive Date: 20050329
  Receipt Date: 20050323
  Transmission Date: 20050727
  Serious: Yes (Other)
  Sender: FDA-Public Use
  Company Number: 200511044FR

PATIENT
  Age: 49 Year
  Sex: Female

DRUGS (1)
  1. BIRODOGYL [Suspect]
     Indication: TOOTH INFECTION
     Dosage: DOSE UNIT: UNITS
     Route: 048
     Dates: start: 20050321, end: 20050322

REACTIONS (2)
  - HAEMATOMA [None]
  - PRURITUS [None]
